FAERS Safety Report 14257890 (Version 1)
Quarter: 2017Q4

REPORT INFORMATION
  Report Type: Spontaneous
  Country: US (occurrence: US)
  Receive Date: 20171207
  Receipt Date: 20171207
  Transmission Date: 20180321
  Serious: Yes (Other)
  Sender: FDA-Public Use
  Company Number: US-CLOVIS ONCOLOGY-CLO-2017-001395

PATIENT
  Sex: Female
  Weight: 49.89 kg

DRUGS (1)
  1. RUBRACA [Suspect]
     Active Substance: RUCAPARIB CAMSYLATE
     Indication: GENITAL NEOPLASM MALIGNANT FEMALE
     Dosage: 2 TABLETS EVERY 12 HOURS
     Route: 048
     Dates: start: 20171109, end: 20171125

REACTIONS (3)
  - Gastrointestinal neoplasm [Not Recovered/Not Resolved]
  - Off label use [Unknown]
  - Unevaluable event [Not Recovered/Not Resolved]
